FAERS Safety Report 5344256-X (Version None)
Quarter: 2007Q2

REPORT INFORMATION
  Report Type: 
  Country: None (occurrence: None)
  Receive Date: 20070604
  Receipt Date: 20070524
  Transmission Date: 20071010
  Serious: Yes (Other)
  Sender: FDA-Public Use
  Company Number: US-ROCHE-467888

PATIENT
  Age: 54 Year
  Sex: Female
  Weight: 73.9 kg

DRUGS (5)
  1. BONIVA [Suspect]
     Indication: DRUG USE FOR UNKNOWN INDICATION
     Dosage: MONTHLY.
     Route: 065
     Dates: start: 20060201, end: 20060801
  2. MOBIC [Concomitant]
     Dosage: REPORTED DOSAGE REGIMEN: 1 DAILY.
  3. TYLENOL [Concomitant]
  4. TYLENOL W/ CODEINE NO. 2 [Concomitant]
     Dosage: AS NEEDED.
  5. AMBIEN [Concomitant]
     Dosage: REPORTED DOSAGE REGIMEN: RARELY.

REACTIONS (9)
  - ARTHRALGIA [None]
  - BACK PAIN [None]
  - EXOSTOSIS [None]
  - MUSCULOSKELETAL PAIN [None]
  - OSTEOARTHRITIS [None]
  - PAIN [None]
  - PAIN IN EXTREMITY [None]
  - ROTATOR CUFF SYNDROME [None]
  - TENDON DISORDER [None]
